FAERS Safety Report 25898032 (Version 1)
Quarter: 2025Q4

REPORT INFORMATION
  Report Type: Spontaneous
  Country: VE (occurrence: VE)
  Receive Date: 20251008
  Receipt Date: 20251008
  Transmission Date: 20260118
  Serious: Yes (Other)
  Sender: NOVARTIS
  Company Number: VE-002147023-NVSC2022VE132629

PATIENT
  Sex: Female

DRUGS (2)
  1. GLIVEC [Suspect]
     Active Substance: IMATINIB MESYLATE
     Indication: Chronic myeloid leukaemia
     Dosage: 400 MG (4X 100MG)
     Route: 065
  2. GLIVEC [Suspect]
     Active Substance: IMATINIB MESYLATE
     Dosage: 200 MG
     Route: 065

REACTIONS (8)
  - Mental impairment [Unknown]
  - Reflux gastritis [Unknown]
  - Dysgeusia [Unknown]
  - Anxiety [Unknown]
  - Functional gastrointestinal disorder [Unknown]
  - Malaise [Unknown]
  - Gastrointestinal disorder [Unknown]
  - Off label use [Unknown]
